FAERS Safety Report 4307699-9 (Version None)
Quarter: 2004Q1

REPORT INFORMATION
  Report Type: 
  Country: None (occurrence: None)
  Receive Date: 20040225
  Receipt Date: 20030522
  Transmission Date: 20041129
  Serious: Yes (Disabling)
  Sender: FDA-Public Use
  Company Number: WAES 0305USA02440

PATIENT
  Age: 77 Year
  Sex: Male
  Weight: 95.2554 kg

DRUGS (8)
  1. ZOCOR [Suspect]
     Indication: BLOOD CHOLESTEROL INCREASED
     Dosage: 20 MG/DAILY/PO
     Route: 048
     Dates: start: 20000301, end: 20030501
  2. ALTACE [Concomitant]
  3. GLUCOPHAGE [Concomitant]
  4. NORVASC [Concomitant]
  5. ASPIRIN [Concomitant]
  6. ATENOLOL [Concomitant]
  7. HYDROXYCHLOROQUINE SULFATE [Concomitant]
  8. RANITIDINE [Concomitant]

REACTIONS (1)
  - DERMATOMYOSITIS [None]
